FAERS Safety Report 10655363 (Version 1)
Quarter: 2014Q4

REPORT INFORMATION
  Report Type: Spontaneous
  Country: None (occurrence: None)
  Receive Date: 20141215
  Receipt Date: 20141215
  Transmission Date: 20150529
  Serious: Yes (Disabling, Other)
  Sender: FDA-Public Use
  Company Number: None

PATIENT
  Age: 8 Year
  Sex: Male
  Weight: 46.27 kg

DRUGS (2)
  1. CEFDINIR. [Suspect]
     Active Substance: CEFDINIR
     Indication: EAR INFECTION
     Dosage: 1 TEASPOON TWICE DAILY TAKEN BY MOUTH
     Route: 048
     Dates: start: 20141207, end: 20141214
  2. CEFDINIR. [Suspect]
     Active Substance: CEFDINIR
     Indication: SINUSITIS
     Dosage: 1 TEASPOON TWICE DAILY TAKEN BY MOUTH
     Route: 048
     Dates: start: 20141207, end: 20141214

REACTIONS (3)
  - Drug interaction [None]
  - Abnormal behaviour [None]
  - Self injurious behaviour [None]

NARRATIVE: CASE EVENT DATE: 20141207
